FAERS Safety Report 21064247 (Version 2)
Quarter: 2022Q3

REPORT INFORMATION
  Report Type: Spontaneous
  Country: FR (occurrence: FR)
  Receive Date: 20220711
  Receipt Date: 20220902
  Transmission Date: 20221027
  Serious: Yes (Hospitalization)
  Sender: FDA-Public Use
  Company Number: None

PATIENT
  Age: 67 Year
  Sex: Male
  Weight: 68 kg

DRUGS (9)
  1. BENDAMUSTINE HYDROCHLORIDE [Suspect]
     Active Substance: BENDAMUSTINE HYDROCHLORIDE
     Indication: Marginal zone lymphoma
     Dosage: UNIT DOSE : 320 MG , FREQUENCY TIME : 1 CYCLICAL , DURATION : 79 DAYS
     Route: 065
     Dates: start: 20220301, end: 20220519
  2. FILGRASTIM [Suspect]
     Active Substance: FILGRASTIM
     Indication: Chemotherapy cytokine prophylaxis
     Dosage: 30 MU/0.5 ML  , UNIT DOSE : 4 DF , FREQUENCY TIME : 1 CYCLICAL , DURATION : 83 DAYS
     Route: 065
     Dates: start: 20220307, end: 20220529
  3. PREDNISONE [Concomitant]
     Active Substance: PREDNISONE
     Indication: Marginal zone lymphoma
     Dosage: UNIT DOSE : 70 MG , FREQUENCY TIME : 1 CYCLICAL , DURATION : 79 DAYS
     Dates: start: 20220301, end: 20220519
  4. MABTHERA [Concomitant]
     Active Substance: RITUXIMAB
     Indication: Marginal zone lymphoma
     Dosage: UNIT DOSE : 650 MG , FREQUENCY TIME : 1 CYCLICAL ,DURATION : 79 DAYS
     Dates: start: 20220301, end: 20220519
  5. CLAMOXYL [Concomitant]
     Indication: Product used for unknown indication
     Dosage: FORM STRENGTH : 500MG, UNIT DOSE : 1 DF , FREQUENCY TIME : 1 DAYS
     Dates: start: 20220301, end: 202203
  6. VALACYCLOVIR HYDROCHLORIDE [Concomitant]
     Active Substance: VALACYCLOVIR HYDROCHLORIDE
     Indication: Product used for unknown indication
     Dosage: FORM STRENGTH : 500 MG, UNIT DOSE : 2 DF , FREQUENCY TIME : 1 DAYS , DURATION : 6 DAYS
     Dates: start: 20220301, end: 20220307
  7. LEUCOVORIN CALCIUM [Concomitant]
     Active Substance: LEUCOVORIN CALCIUM
     Indication: Product used for unknown indication
     Dosage: FORM STRENGTH : 25MG  , UNIT DOSE : 1 DF , FREQUENCY TIME : 1 WEEKS
     Dates: start: 20220301
  8. ATOVAQUONE [Concomitant]
     Active Substance: ATOVAQUONE
     Indication: Product used for unknown indication
     Dosage: 750 MG/5 ML , UNIT DOSE : 2 DF , FREQUENCY TIME : 1 DAYS
     Dates: start: 202203
  9. BACTRIM [Concomitant]
     Active Substance: SULFAMETHOXAZOLE\TRIMETHOPRIM
     Indication: Product used for unknown indication
     Dosage: COMPRESSED , UNIT DOSE : 3 DF , FREQUENCY TIME : 1 WEEKS , DURATION : 6 DAYS
     Dates: start: 20220301, end: 20220307

REACTIONS (2)
  - Acute kidney injury [Recovering/Resolving]
  - Diarrhoea [Recovering/Resolving]

NARRATIVE: CASE EVENT DATE: 20220301
